FAERS Safety Report 22094129 (Version 1)
Quarter: 2023Q1

REPORT INFORMATION
  Report Type: Spontaneous
  Country: US (occurrence: US)
  Receive Date: 20230314
  Receipt Date: 20230314
  Transmission Date: 20230418
  Serious: No
  Sender: FDA-Public Use
  Company Number: US-BRISTOL-MYERS SQUIBB COMPANY-2023-036625

PATIENT
  Age: 81 Year
  Sex: Male

DRUGS (1)
  1. ZEPOSIA [Suspect]
     Active Substance: OZANIMOD HYDROCHLORIDE
     Indication: Product used for unknown indication
     Dosage: FREQUENCY: DAILY
     Route: 048

REACTIONS (4)
  - Myalgia [Unknown]
  - Asthenia [Unknown]
  - Nausea [Unknown]
  - Peripheral swelling [Unknown]
